FAERS Safety Report 8811157 (Version 1)
Quarter: 2012Q4

REPORT INFORMATION
  Report Type: Spontaneous
  Country: US (occurrence: None)
  Receive Date: 20120925
  Receipt Date: 20120925
  Transmission Date: 20130627
  Serious: Yes (Hospitalization)
  Sender: FDA-Public Use
  Company Number: None

PATIENT
  Age: 74 Year
  Sex: Male
  Weight: 83.46 kg

DRUGS (1)
  1. PRADAXA [Suspect]
     Indication: AFIB
     Dosage: 2 x a day  150 mg  oral    
6-8 months
     Route: 048

REACTIONS (2)
  - Constipation [None]
  - Haemorrhage [None]
